FAERS Safety Report 9926723 (Version 2)
Quarter: 2014Q1

REPORT INFORMATION
  Report Type: Report from Study
  Country: JP (occurrence: JP)
  Receive Date: 20140226
  Receipt Date: 20140226
  Transmission Date: 20141002
  Serious: Yes (Other)
  Sender: FDA-Public Use
  Company Number: JP-ABBVIE-13P-087-1091642-00

PATIENT
  Age: 46 Year
  Sex: Female

DRUGS (2)
  1. LEUPLIN SR [Suspect]
     Indication: BREAST CANCER FEMALE
     Route: 048
     Dates: start: 20120423
  2. TASUOMIN [Concomitant]
     Indication: BREAST CANCER FEMALE
     Route: 048

REACTIONS (1)
  - Radiation pneumonitis [Recovered/Resolved]
